FAERS Safety Report 6304513-7 (Version None)
Quarter: 2009Q3

REPORT INFORMATION
  Report Type: 
  Country: None (occurrence: None)
  Receive Date: 20090806
  Receipt Date: 20090731
  Transmission Date: 20100115
  Serious: Yes (Disabling)
  Sender: FDA-Public Use
  Company Number: 8021745

PATIENT
  Age: 3 Year
  Sex: Male

DRUGS (1)
  1. KEPPRA [Suspect]
     Dosage: TRP
     Route: 064

REACTIONS (6)
  - AUTISM [None]
  - COGNITIVE DISORDER [None]
  - MATERNAL DRUGS AFFECTING FOETUS [None]
  - OPPOSITIONAL DEFIANT DISORDER [None]
  - SENSORY INTEGRATIVE DYSFUNCTION [None]
  - SPEECH DISORDER [None]
